FAERS Safety Report 6668405-6 (Version None)
Quarter: 2010Q2

REPORT INFORMATION
  Report Type: 
  Country: None (occurrence: None)
  Receive Date: 20100406
  Receipt Date: 20100324
  Transmission Date: 20101027
  Serious: Yes (Other)
  Sender: FDA-Public Use
  Company Number: PHHY2010FR19676

PATIENT

DRUGS (1)
  1. GLEEVEC [Suspect]
     Dosage: UNK
     Route: 065
     Dates: start: 20030101

REACTIONS (2)
  - DRUG EXPOSURE DURING PREGNANCY [None]
  - JAUNDICE NEONATAL [None]
